FAERS Safety Report 11373024 (Version 1)
Quarter: 2015Q3

REPORT INFORMATION
  Report Type: Spontaneous
  Country: US (occurrence: US)
  Receive Date: 20150811
  Receipt Date: 20150811
  Transmission Date: 20151125
  Serious: No
  Sender: FDA-Public Use
  Company Number: US-ELI_LILLY_AND_COMPANY-US201202002704

PATIENT
  Age: 37 Year
  Sex: Male
  Weight: 74.38 kg

DRUGS (2)
  1. CIALIS [Suspect]
     Active Substance: TADALAFIL
     Dosage: 5 MG, PRN
     Dates: end: 20120206
  2. CIALIS [Suspect]
     Active Substance: TADALAFIL
     Indication: ERECTILE DYSFUNCTION
     Dosage: 2.5 MG, SINGLE
     Dates: start: 20120201, end: 20120201

REACTIONS (4)
  - Wrong technique in product usage process [Unknown]
  - Palpitations [Recovered/Resolved]
  - Tinnitus [Recovered/Resolved]
  - Insomnia [Recovered/Resolved]

NARRATIVE: CASE EVENT DATE: 20120201
